FAERS Safety Report 6601690-5 (Version None)
Quarter: 2010Q1

REPORT INFORMATION
  Report Type: 
  Country: None (occurrence: None)
  Receive Date: 20100225
  Receipt Date: 20100218
  Transmission Date: 20100710
  Serious: Yes (Other)
  Sender: FDA-Public Use
  Company Number: GB-ROCHE-686735

PATIENT

DRUGS (4)
  1. AVASTIN [Suspect]
     Indication: BREAST CANCER
     Route: 065
  2. EPILIM CHRONO [Interacting]
     Route: 065
  3. EPILIM CHRONO [Interacting]
     Route: 065
  4. VINORELBINE [Concomitant]
     Route: 048

REACTIONS (2)
  - CONVULSION [None]
  - DRUG INTERACTION [None]
